FAERS Safety Report 24774549 (Version 1)
Quarter: 2024Q4

REPORT INFORMATION
  Report Type: Spontaneous
  Country: SG (occurrence: SG)
  Receive Date: 20241225
  Receipt Date: 20241225
  Transmission Date: 20250114
  Serious: Yes (Death, Hospitalization)
  Sender: STRIDES
  Company Number: SG-STRIDES ARCOLAB LIMITED-2024SP016932

PATIENT
  Age: 56 Year
  Sex: Female

DRUGS (15)
  1. PREGABALIN [Suspect]
     Active Substance: PREGABALIN
     Indication: Ischaemic limb pain
     Dosage: 75 MILLIGRAM, BID
     Route: 065
  2. PREGABALIN [Suspect]
     Active Substance: PREGABALIN
     Dosage: 150 MILLIGRAM, BID
     Route: 065
  3. PREGABALIN [Suspect]
     Active Substance: PREGABALIN
     Dosage: 225 MILLIGRAM, BID
     Route: 065
  4. PREGABALIN [Suspect]
     Active Substance: PREGABALIN
     Dosage: 300 MILLIGRAM, BID
     Route: 065
  5. PREGABALIN [Suspect]
     Active Substance: PREGABALIN
     Dosage: UNK (DOSE REDUCED)
     Route: 065
  6. HEPARIN [Suspect]
     Active Substance: HEPARIN SODIUM
     Indication: Arterial occlusive disease
     Dosage: UNK
     Route: 042
  7. FENTANYL [Suspect]
     Active Substance: FENTANYL
     Indication: Ischaemic limb pain
     Dosage: 5 MICROGRAM, EVERY HOUR
     Route: 065
  8. FENTANYL [Suspect]
     Active Substance: FENTANYL
     Dosage: 15 MICROGRAM, EVERY HOUR
     Route: 065
  9. FENTANYL [Suspect]
     Active Substance: FENTANYL
     Dosage: 30 MICROGRAM, EVERY HOUR
     Route: 065
  10. FENTANYL [Suspect]
     Active Substance: FENTANYL
     Dosage: 60 MICROGRAM, EVERY HOUR (UPTITRATED)
     Route: 065
  11. OXYCODONE [Suspect]
     Active Substance: OXYCODONE
     Indication: Ischaemic limb pain
     Dosage: 1.5 MILLIGRAM, EVERY HOUR/ INFUSION
     Route: 065
  12. OXYCODONE [Suspect]
     Active Substance: OXYCODONE
     Dosage: 3 MILLIGRAM, EVERY HOUR/ INFUSION
     Route: 065
  13. OXYCODONE [Suspect]
     Active Substance: OXYCODONE
     Dosage: UNK (DOSE DECREASED AND DISCONTINUED)
     Route: 065
  14. NORTRIPTYLINE [Suspect]
     Active Substance: NORTRIPTYLINE
     Indication: Ischaemic limb pain
     Dosage: 10 MILLIGRAM, AT BED TIME (IN THE NIGHT)
     Route: 065
  15. ROPIVACAINE [Suspect]
     Active Substance: ROPIVACAINE
     Indication: Ischaemic limb pain
     Dosage: UNK
     Route: 065

REACTIONS (2)
  - Death [Fatal]
  - Drug ineffective for unapproved indication [Unknown]
